FAERS Safety Report 9306067 (Version 1)
Quarter: 2013Q2

REPORT INFORMATION
  Report Type: Spontaneous
  Country: GB (occurrence: None)
  Receive Date: 20130510
  Receipt Date: 20130510
  Transmission Date: 20140414
  Serious: Yes (Other)
  Sender: FDA-Public Use
  Company Number: 2013035858

PATIENT
  Age: 88 Year
  Sex: Female

DRUGS (3)
  1. BERIPLEX [Suspect]
     Indication: ANTICOAGULANT THERAPY
     Route: 042
     Dates: start: 20130428, end: 20130428
  2. VITAMIN K [Suspect]
     Indication: ANTICOAGULANT THERAPY
     Dosage: TOTAL
     Route: 042
  3. LABETALOL (LABETALOL) [Concomitant]

REACTIONS (1)
  - Hypersensitivity [None]
